FAERS Safety Report 9879374 (Version 1)
Quarter: 2014Q1

REPORT INFORMATION
  Report Type: Spontaneous
  Country: IT (occurrence: IT)
  Receive Date: 20140206
  Receipt Date: 20140206
  Transmission Date: 20141002
  Serious: Yes (Hospitalization)
  Sender: FDA-Public Use
  Company Number: IT-TEVA-460669ISR

PATIENT
  Age: 47 Year
  Sex: Male

DRUGS (7)
  1. CARBAMAZEPINE [Suspect]
     Indication: INTENTIONAL SELF-INJURY
     Dosage: 5 G TOTAL
     Route: 048
     Dates: start: 20131003, end: 20131003
  2. RIVOTRIL - 2,5MG/ML GOCCE ORALI , SOLUZIONE - ROCHE S.P.A. [Suspect]
     Indication: INTENTIONAL SELF-INJURY
     Dosage: 10 ML TOTAL.
     Route: 048
     Dates: start: 20131003, end: 20131003
  3. NICETILE - 500 MG COMPRESSE GASTRORESISTENTI [Concomitant]
     Indication: PRODUCT USED FOR UNKNOWN INDICATION
  4. FOLINA [Concomitant]
     Indication: PRODUCT USED FOR UNKNOWN INDICATION
  5. BENEXOL [Concomitant]
     Indication: PRODUCT USED FOR UNKNOWN INDICATION
  6. PALEXIA [Concomitant]
     Indication: PRODUCT USED FOR UNKNOWN INDICATION
  7. ALLOPURINOL [Concomitant]
     Indication: PRODUCT USED FOR UNKNOWN INDICATION

REACTIONS (5)
  - Bradycardia [Recovered/Resolved]
  - Dyspnoea [Recovered/Resolved]
  - Intentional self-injury [Recovered/Resolved]
  - Sopor [Recovered/Resolved]
  - Drug abuse [Recovered/Resolved]
